FAERS Safety Report 6135234-1 (Version None)
Quarter: 2009Q1

REPORT INFORMATION
  Report Type: 
  Country: None (occurrence: None)
  Receive Date: 20090327
  Receipt Date: 20090316
  Transmission Date: 20090719
  Serious: Yes (Other)
  Sender: FDA-Public Use
  Company Number: US-PFIZER INC-001-0073-M0100178

PATIENT
  Age: 44 Year
  Sex: Male

DRUGS (1)
  1. DILANTIN [Suspect]
     Route: 065

REACTIONS (4)
  - AGGRESSION [None]
  - AGITATION [None]
  - INTENTIONAL OVERDOSE [None]
  - SUICIDE ATTEMPT [None]
